FAERS Safety Report 12628369 (Version 1)
Quarter: 2016Q3

REPORT INFORMATION
  Report Type: Spontaneous
  Country: NL (occurrence: NL)
  Receive Date: 20160808
  Receipt Date: 20160808
  Transmission Date: 20161109
  Serious: Yes (Other)
  Sender: FDA-Public Use
  Company Number: NL-HORIZON-PRE-0241-2016

PATIENT
  Age: 73 Year
  Sex: Male

DRUGS (2)
  1. PREDNISONE. [Suspect]
     Active Substance: PREDNISONE
     Indication: HORMONE-REFRACTORY PROSTATE CANCER
     Dosage: 5 MG BID
  2. ORTERONEL [Suspect]
     Active Substance: ORTERONEL
     Indication: HORMONE-REFRACTORY PROSTATE CANCER
     Dosage: 400 MG BID

REACTIONS (1)
  - Fatigue [Recovered/Resolved]
